FAERS Safety Report 9051145 (Version 5)
Quarter: 2013Q2

REPORT INFORMATION
  Report Type: Spontaneous
  Country: US (occurrence: US)
  Receive Date: 20130206
  Receipt Date: 20130514
  Transmission Date: 20140414
  Serious: Yes (Other)
  Sender: FDA-Public Use
  Company Number: US-PFIZER INC-2013046468

PATIENT
  Sex: Female

DRUGS (2)
  1. EFFEXOR XR [Suspect]
     Dosage: UNK
  2. LYRICA [Concomitant]
     Dosage: UNK

REACTIONS (6)
  - Self injurious behaviour [Unknown]
  - Violence-related symptom [Unknown]
  - Feeling abnormal [Unknown]
  - Anxiety [Unknown]
  - Thinking abnormal [Unknown]
  - Drug ineffective [Unknown]
